FAERS Safety Report 9652850 (Version 2)
Quarter: 2013Q4

REPORT INFORMATION
  Report Type: Spontaneous
  Country: IT (occurrence: IT)
  Receive Date: 20131029
  Receipt Date: 20131204
  Transmission Date: 20140711
  Serious: Yes (Hospitalization)
  Sender: FDA-Public Use
  Company Number: IT-TEVA-439104ISR

PATIENT
  Age: 76 Year
  Sex: Male
  Weight: 85 kg

DRUGS (6)
  1. CLOPIDOGREL [Suspect]
     Dosage: 75 MILLIGRAM DAILY;
     Route: 048
     Dates: start: 20131002
  2. CARDIOASPIRINA 100 MG [Concomitant]
     Dosage: 100 MILLIGRAM DAILY;
  3. PANTORC 20MG [Concomitant]
     Dosage: 20 MILLIGRAM DAILY;
  4. BISOPROLOLO 10 MG [Concomitant]
     Dosage: 10 MILLIGRAM DAILY;
  5. TRIATEC 10MG [Concomitant]
     Dosage: 10 MILLIGRAM DAILY;
  6. TORVAST 10MG [Concomitant]
     Dosage: 10 MILLIGRAM DAILY;

REACTIONS (1)
  - Arterial restenosis [Recovered/Resolved]
